FAERS Safety Report 9217517 (Version 2)
Quarter: 2013Q2

REPORT INFORMATION
  Report Type: Report from Study
  Country: CA (occurrence: CA)
  Receive Date: 20130408
  Receipt Date: 20130409
  Transmission Date: 20140414
  Serious: No
  Sender: FDA-Public Use
  Company Number: CA-ROCHE-1211168

PATIENT
  Sex: Female
  Weight: 67 kg

DRUGS (8)
  1. ACTEMRA [Suspect]
     Indication: RHEUMATOID ARTHRITIS
     Route: 042
     Dates: start: 20110119
  2. ACTEMRA [Suspect]
     Route: 042
     Dates: start: 20110222
  3. ACTEMRA [Suspect]
     Route: 042
     Dates: start: 20120106
  4. ACTEMRA [Suspect]
     Route: 042
     Dates: start: 20120524
  5. RITUXAN [Concomitant]
     Route: 065
     Dates: end: 201008
  6. METHOTREXATE [Concomitant]
  7. OXYCONTIN [Concomitant]
  8. FOLIC ACID [Concomitant]

REACTIONS (1)
  - Weight fluctuation [Not Recovered/Not Resolved]
